FAERS Safety Report 6508147-0 (Version None)
Quarter: 2009Q4

REPORT INFORMATION
  Report Type: 
  Country: None (occurrence: None)
  Receive Date: 20091221
  Receipt Date: 20091214
  Transmission Date: 20100525
  Serious: Yes (Disabling)
  Sender: FDA-Public Use
  Company Number: GB-PFIZER INC-2008026437

PATIENT
  Age: 38 Year

DRUGS (5)
  1. PREGABALIN [Suspect]
     Indication: TRIGEMINAL NEURALGIA
     Dosage: 300 MG, 2X/DAY
     Route: 048
     Dates: start: 20071218
  2. DICLOFENAC [Concomitant]
     Route: 048
     Dates: start: 20080225
  3. ORLISTAT [Concomitant]
     Route: 048
     Dates: start: 20080214
  4. SENNA [Concomitant]
     Dosage: 7.5 G, 1X/DAY
     Route: 048
     Dates: start: 20080204
  5. TRAMADOL HCL [Concomitant]
     Route: 048
     Dates: start: 20071025

REACTIONS (2)
  - HAEMORRHAGE [None]
  - THROMBOSIS [None]
